FAERS Safety Report 8808796 (Version 1)
Quarter: 2012Q4

REPORT INFORMATION
  Report Type: 
  Country: US (occurrence: US)
  Receive Date: 20120926
  Receipt Date: 20120926
  Transmission Date: 20130627
  Serious: Yes (Other)
  Sender: FDA-Public Use
  Company Number: US-PFIZER INC-2012235099

PATIENT
  Age: 29 Year
  Sex: Female
  Weight: 83.9 kg

DRUGS (13)
  1. MEDROXYPROGESTERONE ACETATE [Suspect]
     Indication: ENDOMETRIOSIS
     Dosage: UNK
     Dates: start: 2003
  2. SYNTHROID [Concomitant]
     Indication: AUTOIMMUNE THYROIDITIS
     Dosage: 88 ug, 1x/day
  3. PRAVASTATIN [Concomitant]
     Indication: BLOOD CHOLESTEROL INCREASED
     Dosage: 20 mg, 1x/day
  4. LORATADINE [Concomitant]
     Indication: HYPERSENSITIVITY
     Dosage: 10 mg, 1x/day
  5. HYDROCHLOROTHIAZIDE [Concomitant]
     Indication: SWELLING
     Dosage: 12.5 mg, 1x/day
  6. GABAPENTIN [Concomitant]
     Indication: CONVULSION
     Dosage: 300 mg, 2x/day
  7. BENTYL [Concomitant]
     Indication: CROHN^S DISEASE
     Dosage: 20 mg, 3x/day
  8. REMICADE [Concomitant]
     Indication: CROHN^S DISEASE
     Dosage: UNK, every 8 weeks
  9. VITAMIN B12 [Concomitant]
     Indication: VITAMIN B12 DEFICIENCY
     Dosage: UNK, monthly
  10. PEPCID [Concomitant]
     Indication: GASTROOESOPHAGEAL REFLUX DISEASE
     Dosage: 20 mg, 1x/day
  11. CALCIUM [Concomitant]
     Indication: OSTEOPOROSIS
     Dosage: 800 mg, 2x/day
  12. VITAMIN D [Concomitant]
     Indication: VITAMIN D DEFICIENCY
     Dosage: 500 IU, 2x/day
  13. IBUPROFEN [Concomitant]
     Indication: PAIN
     Dosage: 800 mg, 3x/day

REACTIONS (2)
  - Gastrointestinal disorder [Unknown]
  - Scar [Unknown]
